FAERS Safety Report 26066853 (Version 2)
Quarter: 2025Q4

REPORT INFORMATION
  Report Type: Spontaneous
  Country: GB (occurrence: GB)
  Receive Date: 20251119
  Receipt Date: 20251210
  Transmission Date: 20260119
  Serious: Yes (Other)
  Sender: SANDOZ
  Company Number: None

PATIENT
  Age: 74 Year
  Weight: 62 kg

DRUGS (7)
  1. FILGRASTIM [Suspect]
     Active Substance: FILGRASTIM
     Indication: Product used for unknown indication
     Dosage: 300 UG, QW
     Route: 058
     Dates: start: 20251114, end: 20251115
  2. FILGRASTIM [Suspect]
     Active Substance: FILGRASTIM
     Dosage: 300 UG, QW
     Route: 058
     Dates: start: 202209
  3. FILGRASTIM [Suspect]
     Active Substance: FILGRASTIM
     Dosage: EVERY 1-2 WEEKS
     Route: 058
     Dates: start: 202101
  4. CANDESARTAN [Concomitant]
     Active Substance: CANDESARTAN
     Indication: Product used for unknown indication
     Route: 048
     Dates: start: 20220114
  5. EPOETIN BETA [Concomitant]
     Active Substance: ERYTHROPOIETIN
     Indication: Product used for unknown indication
     Dosage: 60000 DF, QW
     Route: 059
     Dates: start: 20220101
  6. FOLIC ACID [Concomitant]
     Active Substance: FOLIC ACID
     Indication: Product used for unknown indication
     Dosage: 5 MG, QD
     Route: 048
     Dates: start: 20210629
  7. HYDROXOCOBALAMIN [Concomitant]
     Active Substance: HYDROXOCOBALAMIN
     Indication: Product used for unknown indication
     Dosage: 1 MG, Q3MO
     Route: 030
     Dates: start: 20180105

REACTIONS (2)
  - Chronic kidney disease [Unknown]
  - Glomerulonephritis [Unknown]
